FAERS Safety Report 10049809 (Version 2)
Quarter: 2014Q2

REPORT INFORMATION
  Report Type: Report from Study
  Country: DE (occurrence: DE)
  Receive Date: 20140401
  Receipt Date: 20140513
  Transmission Date: 20141212
  Serious: Yes (Other)
  Sender: FDA-Public Use
  Company Number: DE-BEH-2014041462

PATIENT
  Age: 28 Year
  Sex: Female
  Weight: 94 kg

DRUGS (8)
  1. PRIVIGEN [Suspect]
     Indication: IMMUNODEFICIENCY COMMON VARIABLE
     Dosage: 30 G IN TOTAL OF BOTH BATCH NUMBERS; INFUSION RATE MIN. 5 ML/MIN, MAX. 6.7 ML/MIN
     Route: 042
     Dates: start: 20100212, end: 20100212
  2. PRIVIGEN [Suspect]
     Dosage: 30 G IN TOTAL OF BOTH BATCH NUMBERS; INFUSION RATE MIN. 5 ML/MIN, MAX. 6.7 ML/MIN
     Route: 042
     Dates: start: 20100212, end: 20100212
  3. PRIVIGEN [Suspect]
     Dosage: 30 G IN TOTAL OF BOTH BATCH NUMBERS; INFUSION RATE MIN. 5 ML/MIN, MAX. 6.7 ML/MIN
     Route: 042
     Dates: start: 20100319, end: 20100319
  4. PRIVIGEN [Suspect]
     Dosage: 30 G IN TOTAL OF BOTH BATCH NUMBERS; INFUSION RATE MIN. 5 ML/MIN, MAX. 6.7 ML/MIN
     Route: 042
     Dates: start: 20100319, end: 20100319
  5. CLEXANE [Concomitant]
  6. HAEMATE [Concomitant]
     Route: 042
     Dates: start: 20100212, end: 20100212
  7. HAEMATE [Concomitant]
     Route: 042
     Dates: start: 20100319, end: 20100319
  8. KYBERNIN (ANTITHROMBIN III) [Concomitant]

REACTIONS (2)
  - Habitual abortion [Unknown]
  - Exposure during pregnancy [Unknown]
